FAERS Safety Report 5029199-3 (Version None)
Quarter: 2006Q2

REPORT INFORMATION
  Report Type: 
  Country: None (occurrence: None)
  Receive Date: 20060613
  Receipt Date: 20060602
  Transmission Date: 20061013
  Serious: Yes (Hospitalization, Other)
  Sender: FDA-Public Use
  Company Number: 2006-06-0104

PATIENT
  Age: 67 Year
  Sex: Male

DRUGS (10)
  1. INTEGRILIN [Suspect]
     Indication: ACUTE CORONARY SYNDROME
     Dosage: INTRAVENOUS
     Route: 042
     Dates: start: 20060421
  2. BLINDED STUDY CATEGORY - NON-SCHERING DRUGS NO DOSE FORM [Suspect]
     Indication: ACUTE CORONARY SYNDROME
  3. ENOXAPARIN NO DOSE FORM [Suspect]
  4. ASPIRIN [Suspect]
  5. METOPROLOL TARTRATE [Concomitant]
  6. NITROGLYCERIN [Concomitant]
  7. OMEPRAZOLE [Concomitant]
  8. LISINOPRIL [Concomitant]
  9. OXYCODONE HCL [Concomitant]
  10. LASIX [Concomitant]

REACTIONS (5)
  - HAEMATOMA [None]
  - HAEMOGLOBIN DECREASED [None]
  - HAEMORRHAGE [None]
  - HEPATIC CYST [None]
  - LUNG DISORDER [None]
